FAERS Safety Report 6240569-8 (Version None)
Quarter: 2009Q2

REPORT INFORMATION
  Report Type: 
  Country: None (occurrence: None)
  Receive Date: 20090623
  Receipt Date: 20090415
  Transmission Date: 20091009
  Serious: Yes (Other)
  Sender: FDA-Public Use
  Company Number: US-ASTRAZENECA-2008UW21413

PATIENT
  Age: 80 Year
  Sex: Female
  Weight: 81.6 kg

DRUGS (7)
  1. PULMICORT RESPULES [Suspect]
     Indication: CHRONIC OBSTRUCTIVE PULMONARY DISEASE
     Dosage: 0.25 MG TWICE DAILY
     Route: 055
     Dates: start: 20050101
  2. XOPENEX [Suspect]
     Indication: CHRONIC OBSTRUCTIVE PULMONARY DISEASE
     Dosage: 1.25 MG/3 ML, THREE TIMES DAILY
     Route: 055
     Dates: start: 20060101
  3. SYNTHROID [Concomitant]
  4. ALBUTEROL [Concomitant]
  5. CALCIUM [Concomitant]
  6. MUCINEX [Concomitant]
  7. TYLENOL (CAPLET) [Concomitant]

REACTIONS (5)
  - CATARACT [None]
  - DIABETES MELLITUS [None]
  - MUSCLE SPASMS [None]
  - NEUROPATHY PERIPHERAL [None]
  - VITAMIN D DEFICIENCY [None]
